FAERS Safety Report 7917056-1 (Version None)
Quarter: 2011Q4

REPORT INFORMATION
  Report Type: 
  Country: None (occurrence: None)
  Receive Date: 20111116
  Receipt Date: 20111111
  Transmission Date: 20120403
  Serious: Yes (Other)
  Sender: FDA-Public Use
  Company Number: CA-PFIZER INC-2011276778

PATIENT
  Age: 59 Year
  Sex: Female

DRUGS (2)
  1. PROVERA [Suspect]
     Indication: OFF LABEL USE
     Dosage: UNK
     Route: 048
     Dates: start: 20080401
  2. PROVERA [Suspect]
     Indication: HOT FLUSH

REACTIONS (2)
  - ABASIA [None]
  - VAGINAL HAEMORRHAGE [None]
